FAERS Safety Report 13508114 (Version 2)
Quarter: 2017Q2

REPORT INFORMATION
  Report Type: Spontaneous
  Country: FR (occurrence: FR)
  Receive Date: 20170503
  Receipt Date: 20170626
  Transmission Date: 20170830
  Serious: Yes (Hospitalization, Other)
  Sender: FDA-Public Use
  Company Number: FR-BRISTOL-MYERS SQUIBB COMPANY-BMS-2017-036912

PATIENT
  Age: 74 Year
  Sex: Male
  Weight: 47 kg

DRUGS (3)
  1. UROREC [Concomitant]
     Active Substance: SILODOSIN
     Indication: PROSTATISM
     Dosage: 8 MG, QD
     Route: 048
  2. VERAPAMIL [Concomitant]
     Active Substance: VERAPAMIL HYDROCHLORIDE
     Indication: HYPERTENSION
     Dosage: 240 MG, QD
     Route: 048
  3. ELIQUIS [Suspect]
     Active Substance: APIXABAN
     Indication: THROMBOSIS PROPHYLAXIS
     Dosage: 10 MG, BID
     Route: 065
     Dates: start: 20170421, end: 20170424

REACTIONS (2)
  - Prescribed overdose [Unknown]
  - Rash morbilliform [Unknown]

NARRATIVE: CASE EVENT DATE: 20170421
